FAERS Safety Report 22039862 (Version 1)
Quarter: 2023Q1

REPORT INFORMATION
  Report Type: Spontaneous
  Country: US (occurrence: US)
  Receive Date: 20230227
  Receipt Date: 20230227
  Transmission Date: 20230417
  Serious: No
  Sender: FDA-Public Use
  Company Number: US-TEVA-2023-US-2855013

PATIENT
  Age: 58 Year
  Sex: Female

DRUGS (1)
  1. BUPRENORPHINE [Suspect]
     Active Substance: BUPRENORPHINE
     Indication: Product used for unknown indication
     Dosage: 6 MILLIGRAM DAILY; 2 MILLIGRAM
     Route: 065

REACTIONS (2)
  - Nausea [Unknown]
  - Product prescribing error [Unknown]
